FAERS Safety Report 23535482 (Version 1)
Quarter: 2024Q1

REPORT INFORMATION
  Report Type: Spontaneous
  Country: FR (occurrence: None)
  Receive Date: 20240218
  Receipt Date: 20240218
  Transmission Date: 20240409
  Serious: Yes (Hospitalization)
  Sender: FDA-Public Use
  Company Number: 2024A039472

PATIENT
  Age: 56 Year
  Sex: Female
  Weight: 73 kg

DRUGS (2)
  1. CANDESARTAN CILEXETIL\HYDROCHLOROTHIAZIDE [Suspect]
     Active Substance: CANDESARTAN CILEXETIL\HYDROCHLOROTHIAZIDE
     Dosage: 1-0-0, DATE OF INTRODUCTION UNKNOWN, BETWEEN 2009 AND 2017 UNKNOWN
     Dates: start: 2009
  2. SYMBICORT [Suspect]
     Active Substance: BUDESONIDE\FORMOTEROL FUMARATE DIHYDRATE
     Dosage: 1-0-1

REACTIONS (3)
  - Chronic obstructive pulmonary disease [Recovered/Resolved]
  - Influenza [Unknown]
  - Palmoplantar keratoderma [Not Recovered/Not Resolved]

NARRATIVE: CASE EVENT DATE: 20170219
